FAERS Safety Report 18013562 (Version 1)
Quarter: 2020Q3

REPORT INFORMATION
  Report Type: Spontaneous
  Country: US (occurrence: US)
  Receive Date: 20200713
  Receipt Date: 20200713
  Transmission Date: 20201103
  Serious: No
  Sender: FDA-Public Use
  Company Number: US-ELI_LILLY_AND_COMPANY-US202006007149

PATIENT
  Age: 58 Year
  Sex: Male

DRUGS (2)
  1. GLUCOPHAGE METFORMIN [Concomitant]
     Indication: DIABETES MELLITUS
     Dosage: UNK UNK, BID
  2. BASAGLAR [Suspect]
     Active Substance: INSULIN GLARGINE
     Indication: PRODUCT USED FOR UNKNOWN INDICATION
     Dosage: 60 U, DAILY
     Route: 058

REACTIONS (4)
  - Injection site pain [Recovered/Resolved]
  - Glycosylated haemoglobin increased [Recovering/Resolving]
  - Injection site inflammation [Recovered/Resolved]
  - Injection site erythema [Recovered/Resolved]

NARRATIVE: CASE EVENT DATE: 202005
